FAERS Safety Report 15671071 (Version 1)
Quarter: 2018Q4

REPORT INFORMATION
  Report Type: Spontaneous
  Country: DK (occurrence: DK)
  Receive Date: 20181129
  Receipt Date: 20181129
  Transmission Date: 20190205
  Serious: Yes (Death)
  Sender: FDA-Public Use
  Company Number: PHHY2018DK168277

PATIENT
  Age: 54 Year
  Sex: Female

DRUGS (5)
  1. CIFIN [Suspect]
     Active Substance: CIPROFLOXACIN HYDROCHLORIDE
     Indication: NAUSEA
     Dosage: DOSIS: UKENDT, STYRKE: 500 MG.
     Route: 048
  2. METOCLOPRAMIDE HYDROCHLORIDE. [Suspect]
     Active Substance: METOCLOPRAMIDE HYDROCHLORIDE
     Indication: PRODUCT USED FOR UNKNOWN INDICATION
     Dosage: DOSIS: UKENDT. STYRKE: UKENDT.
     Route: 065
  3. ONDANSETRON HYDROCHLORIDE. [Suspect]
     Active Substance: ONDANSETRON HYDROCHLORIDE
     Indication: PRODUCT USED FOR UNKNOWN INDICATION
     Dosage: DOSIS: UKENDT. STYRKE: UKENDT.
     Route: 065
  4. MORFIN [Concomitant]
     Active Substance: MORPHINE SULFATE
     Indication: PAIN
     Dosage: 10 MG, UNK
     Route: 065
  5. MALFIN [Concomitant]
     Active Substance: MORPHINE SULFATE
     Indication: PAIN
     Dosage: STYRKE: 10 MG.
     Route: 048

REACTIONS (2)
  - Gastric haemorrhage [Fatal]
  - Electrocardiogram QT prolonged [Fatal]

NARRATIVE: CASE EVENT DATE: 20180903
